FAERS Safety Report 7283154-1 (Version None)
Quarter: 2011Q1

REPORT INFORMATION
  Report Type: 
  Country: None (occurrence: None)
  Receive Date: 20110204
  Receipt Date: 20110204
  Transmission Date: 20110831
  Serious: Yes (Hospitalization)
  Sender: FDA-Public Use
  Company Number: None

PATIENT
  Sex: Male
  Weight: 57.2 kg

DRUGS (6)
  1. MERCAPTOPURINE [Suspect]
     Dosage: 2650 MG
     Dates: end: 20101206
  2. METHOTREXATE [Suspect]
     Dosage: 60 MG
     Dates: end: 20101109
  3. ONCASPAR [Suspect]
     Dosage: 8325 IU
     Dates: end: 20101207
  4. VINCRISTINE SULFATE [Suspect]
     Dosage: 8 MG
     Dates: end: 20101214
  5. CYCLOPHOSPHAMIDE [Suspect]
     Dosage: 3290 MG
     Dates: end: 20101123
  6. CYTARABINE [Suspect]
     Dosage: 1990 MG
     Dates: end: 20101203

REACTIONS (1)
  - INTERNATIONAL NORMALISED RATIO DECREASED [None]
